FAERS Safety Report 4477941-2 (Version None)
Quarter: 2004Q4

REPORT INFORMATION
  Report Type: 
  Country: None (occurrence: None)
  Receive Date: 20041018
  Receipt Date: 20041005
  Transmission Date: 20050328
  Serious: Yes (Disabling)
  Sender: FDA-Public Use
  Company Number: US-MERCK-0410USA00658

PATIENT
  Sex: Male

DRUGS (9)
  1. [THERAPY UNSPECIFIED] [Concomitant]
     Route: 065
  2. TYLENOL W/ CODEINE NO. 3 [Concomitant]
     Route: 065
  3. VIOXX [Suspect]
     Indication: SCIATICA
     Route: 048
     Dates: start: 20030501
  4. VIOXX [Suspect]
     Route: 048
     Dates: end: 20040901
  5. VIOXX [Suspect]
     Route: 048
     Dates: start: 20041001
  6. VIOXX [Suspect]
     Indication: ARTHRALGIA
     Route: 048
     Dates: start: 20030501
  7. VIOXX [Suspect]
     Route: 048
     Dates: end: 20040901
  8. VIOXX [Suspect]
     Route: 048
     Dates: start: 20041001
  9. ULTRAM [Concomitant]
     Route: 065

REACTIONS (4)
  - BACK PAIN [None]
  - MEDICATION ERROR [None]
  - NECK PAIN [None]
  - REBOUND EFFECT [None]
